FAERS Safety Report 18259468 (Version 6)
Quarter: 2020Q4

REPORT INFORMATION
  Report Type: Spontaneous
  Country: MX (occurrence: MX)
  Receive Date: 20200911
  Receipt Date: 20201029
  Transmission Date: 20210113
  Serious: Yes (Other)
  Sender: FDA-Public Use
  Company Number: MX-009507513-2008MEX007765

PATIENT
  Age: 30 Year
  Sex: Female
  Weight: 61 kg

DRUGS (2)
  1. IMPLANON NXT [Suspect]
     Active Substance: ETONOGESTREL
     Indication: CONTRACEPTION
     Dosage: 1 IMPLANT
     Route: 059
     Dates: end: 20200725
  2. IMPLANON NXT [Suspect]
     Active Substance: ETONOGESTREL
     Indication: CONTRACEPTION
     Dosage: 1 IMPLANT
     Route: 059
     Dates: start: 20200725, end: 20200731

REACTIONS (12)
  - Pain in extremity [Recovered/Resolved]
  - Device placement issue [Recovered/Resolved]
  - Procedural pain [Recovered/Resolved]
  - Contusion [Recovered/Resolved]
  - Wrong technique in device usage process [Unknown]
  - Muscle injury [Recovered/Resolved]
  - Myositis [Recovered/Resolved]
  - General anaesthesia [Recovered/Resolved]
  - Implant site haemorrhage [Recovered/Resolved]
  - Complication of device removal [Recovered/Resolved]
  - Peripheral swelling [Recovered/Resolved]
  - Discomfort [Recovering/Resolving]

NARRATIVE: CASE EVENT DATE: 20200725
